FAERS Safety Report 21562678 (Version 1)
Quarter: 2022Q4

REPORT INFORMATION
  Report Type: Spontaneous
  Country: CA (occurrence: CA)
  Receive Date: 20221107
  Receipt Date: 20221107
  Transmission Date: 20230113
  Serious: Yes (Death, Disabling, Other)
  Sender: FDA-Public Use
  Company Number: CA-GALDERMA-CA2022014947

PATIENT

DRUGS (338)
  1. CALCITRIOL [Suspect]
     Active Substance: CALCITRIOL
     Indication: Product used for unknown indication
     Dosage: UNK
     Route: 065
  2. CALCITRIOL [Suspect]
     Active Substance: CALCITRIOL
     Indication: Vitamin supplementation
  3. ACETAMINOPHEN [Concomitant]
     Active Substance: ACETAMINOPHEN
     Indication: Off label use
     Dosage: 650 GRAM, QD
     Route: 048
  4. ACETAMINOPHEN [Concomitant]
     Active Substance: ACETAMINOPHEN
     Indication: Intentional product misuse
     Dosage: 5 MILLIGRAM, QD
     Route: 042
  5. ACETAMINOPHEN [Concomitant]
     Active Substance: ACETAMINOPHEN
     Indication: Analgesic therapy
  6. ALLOPURINOL [Concomitant]
     Active Substance: ALLOPURINOL
     Indication: Product used for unknown indication
     Dosage: 100 MILLIGRAM
     Route: 065
  7. ALLOPURINOL [Concomitant]
     Active Substance: ALLOPURINOL
     Indication: Off label use
     Dosage: 100 MILLIGRAM, QD
     Route: 048
  8. ALLOPURINOL [Concomitant]
     Active Substance: ALLOPURINOL
     Indication: Intentional product misuse
  9. ALLOPURINOL [Concomitant]
     Active Substance: ALLOPURINOL
     Indication: Blood uric acid increased
  10. ALUMINUM HYDROXIDE [Concomitant]
     Active Substance: ALUMINUM HYDROXIDE
     Indication: Product used for unknown indication
     Route: 065
  11. AMINOBENZOIC ACID [Concomitant]
     Active Substance: AMINOBENZOIC ACID
     Indication: Product used for unknown indication
     Dosage: 12.5 MILLIGRAM
     Route: 065
  12. AMIODARONE [Concomitant]
     Active Substance: AMIODARONE
     Indication: Ventricular fibrillation
     Dosage: 150 MILLIGRAM
     Route: 042
  13. AMIODARONE [Concomitant]
     Active Substance: AMIODARONE
     Indication: Product used for unknown indication
     Dosage: UNK MILLIGRAM
     Route: 042
  14. AMIODARONE [Concomitant]
     Active Substance: AMIODARONE
     Indication: Drug therapy
     Dosage: 150 MILLIGRAM, QD
     Route: 042
  15. AMIODARONE [Concomitant]
     Active Substance: AMIODARONE
     Dosage: UNK UNK, QD
     Route: 042
  16. AMIODARONE HYDROCHLORIDE [Concomitant]
     Active Substance: AMIODARONE HYDROCHLORIDE
     Indication: Ventricular fibrillation
     Dosage: 150 MILLIGRAM, QD
     Route: 042
  17. AMIODARONE HYDROCHLORIDE [Concomitant]
     Active Substance: AMIODARONE HYDROCHLORIDE
     Indication: Product used for unknown indication
     Dosage: UNK UNK, QD
     Route: 042
  18. AMIODARONE HYDROCHLORIDE [Concomitant]
     Active Substance: AMIODARONE HYDROCHLORIDE
     Indication: Intentional product misuse
     Dosage: UNK UNK, QD
     Route: 065
  19. AMIODARONE HYDROCHLORIDE [Concomitant]
     Active Substance: AMIODARONE HYDROCHLORIDE
     Indication: Drug therapy
     Dosage: 1 DOSAGE FORM, QD
     Route: 042
  20. AMIODARONE HYDROCHLORIDE [Concomitant]
     Active Substance: AMIODARONE HYDROCHLORIDE
     Dosage: UNK UNK, QD
     Route: 065
  21. AMMONIUM CHLORIDE [Concomitant]
     Active Substance: AMMONIUM CHLORIDE
     Indication: Thrombosis
     Dosage: 2.5 MILLILITER
     Route: 048
  22. AMMONIUM CHLORIDE [Concomitant]
     Active Substance: AMMONIUM CHLORIDE
     Indication: Product used for unknown indication
  23. AMMONIUM CHLORIDE;ASCORBIC ACID;CHLORPHENAMINE MALEATE;GUAIFENESIN;PAR [Concomitant]
     Indication: Thrombosis
     Route: 065
  24. AMMONIUM CHLORIDE;ASCORBIC ACID;CHLORPHENAMINE MALEATE;GUAIFENESIN;PAR [Concomitant]
     Indication: Product used for unknown indication
     Dosage: 2.5 MILLILITER, QD
     Route: 048
  25. AMMONIUM CHLORIDE;ASCORBIC ACID;CHLORPHENAMINE MALEATE;GUAIFENESIN;PAR [Concomitant]
     Dosage: 2.5 MILLILITER
     Route: 048
  26. ARANESP [Concomitant]
     Active Substance: DARBEPOETIN ALFA
     Indication: Anaemia
     Dosage: 0.71 MICROGRAM
     Route: 042
  27. ARANESP [Concomitant]
     Active Substance: DARBEPOETIN ALFA
     Indication: Product used for unknown indication
     Dosage: 0.2 MICROGRAM
     Route: 042
  28. ARANESP [Concomitant]
     Active Substance: DARBEPOETIN ALFA
     Dosage: 0.714 MICROGRAM
     Route: 042
  29. ARANESP [Concomitant]
     Active Substance: DARBEPOETIN ALFA
     Dosage: UNK
     Route: 042
  30. ARANESP [Concomitant]
     Active Substance: DARBEPOETIN ALFA
     Dosage: 10 MICROGRAM
     Route: 042
  31. ARANESP [Concomitant]
     Active Substance: DARBEPOETIN ALFA
     Dosage: 10 MILLIGRAM
     Route: 065
  32. ARANESP [Concomitant]
     Active Substance: DARBEPOETIN ALFA
     Dosage: 1.42 MICROGRAM
     Route: 065
  33. ARANESP [Concomitant]
     Active Substance: DARBEPOETIN ALFA
     Indication: Anaemia
     Dosage: 0.2 MICROGRAM, QWK
     Route: 042
  34. ARANESP [Concomitant]
     Active Substance: DARBEPOETIN ALFA
     Indication: Product used for unknown indication
     Dosage: 10 MICROGRAM
     Route: 042
  35. ARANESP [Concomitant]
     Active Substance: DARBEPOETIN ALFA
     Dosage: 0.71 MICROGRAM
     Route: 042
  36. ARANESP [Concomitant]
     Active Substance: DARBEPOETIN ALFA
     Dosage: 20 MICROGRAM, QWK
     Route: 042
  37. ARANESP [Concomitant]
     Active Substance: DARBEPOETIN ALFA
     Dosage: 1.42 MICROGRAM, QWK
     Route: 042
  38. ATROVENT [Concomitant]
     Active Substance: IPRATROPIUM BROMIDE
     Indication: Dyspnoea
     Dosage: UNK
  39. ATROVENT [Concomitant]
     Active Substance: IPRATROPIUM BROMIDE
     Indication: Product used for unknown indication
     Dosage: UNK, QD
  40. ATROVENT [Concomitant]
     Active Substance: IPRATROPIUM BROMIDE
     Indication: Sleep disorder therapy
     Dosage: 1 DOSAGE FORM
  41. ATROVENT [Concomitant]
     Active Substance: IPRATROPIUM BROMIDE
     Dosage: UNK DOSAGE FORM
     Route: 065
  42. ATROVENT [Concomitant]
     Active Substance: IPRATROPIUM BROMIDE
     Dosage: 1 DOSAGE FORM
     Route: 065
  43. ATROVENT [Concomitant]
     Active Substance: IPRATROPIUM BROMIDE
     Dosage: 1 DOSAGE FORM, QID
     Route: 065
  44. ATROVENT [Concomitant]
     Active Substance: IPRATROPIUM BROMIDE
     Dosage: UNK UNK, QID
     Route: 050
  45. BETAMETHASONE [Concomitant]
     Active Substance: BETAMETHASONE
     Indication: Swelling
     Route: 061
  46. BETAMETHASONE [Concomitant]
     Active Substance: BETAMETHASONE
     Indication: Product used for unknown indication
     Route: 065
  47. BETAMETHASONE [Concomitant]
     Active Substance: BETAMETHASONE
     Indication: Off label use
     Dosage: 10 MILLIGRAM
     Route: 061
  48. BETAMETHASONE [Concomitant]
     Active Substance: BETAMETHASONE
     Dosage: 1 DOSAGE FORM
     Route: 061
  49. BIOTIN [Concomitant]
     Active Substance: BIOTIN
     Indication: Product used for unknown indication
     Route: 065
  50. BISACODYL [Concomitant]
     Active Substance: BISACODYL
     Indication: Ventricular fibrillation
     Dosage: 10 MILLIGRAM
     Route: 065
  51. BISACODYL [Concomitant]
     Active Substance: BISACODYL
     Indication: Product used for unknown indication
     Dosage: 10 MILLIGRAM
     Route: 054
  52. BISACODYL [Concomitant]
     Active Substance: BISACODYL
     Indication: Drug therapy
     Dosage: UNK
     Route: 065
  53. BISACODYL [Concomitant]
     Active Substance: BISACODYL
     Indication: Constipation
     Dosage: 10 MILLIGRAM, QD
     Route: 054
  54. BISACODYL [Concomitant]
     Active Substance: BISACODYL
     Dosage: 10 MILLIGRAM
     Route: 042
  55. HERBALS [Concomitant]
     Active Substance: HERBALS
     Indication: Nutritional supplementation
     Dosage: 12.5 GRAM
     Route: 042
  56. CEFTRIAXONE SODIUM [Concomitant]
     Active Substance: CEFTRIAXONE SODIUM
     Indication: Bacterial infection
     Dosage: 2.0 GRAM
     Route: 065
  57. CEFTRIAXONE SODIUM [Concomitant]
     Active Substance: CEFTRIAXONE SODIUM
     Indication: Product used for unknown indication
     Dosage: UNK UNK, QD
     Route: 042
  58. CEFTRIAXONE SODIUM [Concomitant]
     Active Substance: CEFTRIAXONE SODIUM
     Indication: Off label use
     Dosage: 2.0 GRAM
     Route: 042
  59. CEFTRIAXONE SODIUM [Concomitant]
     Active Substance: CEFTRIAXONE SODIUM
     Dosage: UNK
     Route: 065
  60. CHLORAMPHENICOL [Concomitant]
     Active Substance: CHLORAMPHENICOL
     Indication: Product used for unknown indication
     Route: 065
  61. DALTEPARIN SODIUM [Concomitant]
     Active Substance: DALTEPARIN SODIUM
     Indication: Pulmonary embolism
     Dosage: 12.5 MILLIGRAM
     Route: 042
  62. DALTEPARIN SODIUM [Concomitant]
     Active Substance: DALTEPARIN SODIUM
     Indication: Product used for unknown indication
     Dosage: UNK MILLIGRAM
     Route: 048
  63. DALTEPARIN SODIUM [Concomitant]
     Active Substance: DALTEPARIN SODIUM
     Dosage: 2.5 MILLILITER
     Route: 048
  64. DALTEPARIN SODIUM [Concomitant]
     Active Substance: DALTEPARIN SODIUM
     Dosage: 2.5 MILLILITER
     Route: 065
  65. DALTEPARIN SODIUM [Concomitant]
     Active Substance: DALTEPARIN SODIUM
     Dosage: UNK
     Route: 065
  66. DEXILANT [Concomitant]
     Active Substance: DEXLANSOPRAZOLE
     Indication: Product used for unknown indication
     Dosage: 60 MILLIGRAM, QD
     Route: 048
  67. DEXTROSE C [Concomitant]
     Indication: Nutritional supplementation
     Dosage: 12.5 GRAM
  68. DEXTROSE C [Concomitant]
     Indication: Nutritional supplementation
     Dosage: 12.5 GRAM
     Route: 065
  69. DEXTROSE C [Concomitant]
     Indication: Product used for unknown indication
     Dosage: 12.5 GRAM, QD
     Route: 042
  70. DIPYRONE [Concomitant]
     Active Substance: DIPYRONE
     Indication: Vitamin supplementation
     Dosage: 5 MILLIGRAM
     Route: 042
  71. DIPYRONE [Concomitant]
     Active Substance: DIPYRONE
     Indication: Off label use
     Dosage: 5 MILLIGRAM, QD
     Route: 042
  72. DIPYRONE [Concomitant]
     Active Substance: DIPYRONE
     Indication: Intentional product misuse
     Dosage: UNK UNK
     Route: 065
  73. DIPYRONE [Concomitant]
     Active Substance: DIPYRONE
     Indication: Vitamin supplementation
     Route: 065
  74. DIPYRONE [Concomitant]
     Active Substance: DIPYRONE
     Indication: Off label use
  75. DIPYRONE [Concomitant]
     Active Substance: DIPYRONE
     Indication: Intentional product misuse
  76. DIPYRONE [Concomitant]
     Active Substance: DIPYRONE
     Indication: Vitamin supplementation
     Route: 030
  77. DIPYRONE [Concomitant]
     Active Substance: DIPYRONE
     Indication: Off label use
  78. DIPYRONE [Concomitant]
     Active Substance: DIPYRONE
     Indication: Intentional product misuse
  79. DISTIGMINE BROMIDE [Concomitant]
     Active Substance: DISTIGMINE BROMIDE
     Indication: Product used for unknown indication
     Route: 065
  80. DISTIGMINE BROMIDE [Concomitant]
     Active Substance: DISTIGMINE BROMIDE
     Indication: Dyspnoea
     Dosage: 1 INTERNATIONAL UNIT, QD
     Route: 048
  81. DOBUTAMINE [Concomitant]
     Active Substance: DOBUTAMINE HYDROCHLORIDE
     Indication: Product used for unknown indication
     Route: 065
  82. DOBUTAMINE [Concomitant]
     Active Substance: DOBUTAMINE HYDROCHLORIDE
     Indication: Off label use
     Route: 042
  83. DOBUTAMINE [Concomitant]
     Active Substance: DOBUTAMINE HYDROCHLORIDE
     Indication: Cardiogenic shock
  84. DOCUSATE SODIUM [Concomitant]
     Active Substance: DOCUSATE SODIUM
     Indication: Product used for unknown indication
     Route: 065
  85. FENOTEROL\IPRATROPIUM [Concomitant]
     Active Substance: FENOTEROL\IPRATROPIUM
     Indication: Dyspnoea
     Dosage: 1 DOSAGE FORM, QD
     Route: 050
  86. FENOTEROL\IPRATROPIUM [Concomitant]
     Active Substance: FENOTEROL\IPRATROPIUM
     Indication: Product used for unknown indication
     Dosage: UNK UNK, QD
     Route: 065
  87. FENOTEROL\IPRATROPIUM [Concomitant]
     Active Substance: FENOTEROL\IPRATROPIUM
     Dosage: UNK UNK,
     Route: 065
  88. FENOTEROL\IPRATROPIUM [Concomitant]
     Active Substance: FENOTEROL\IPRATROPIUM
     Dosage: 4 INTERNATIONAL UNIT, QD
     Route: 065
  89. FENOTEROL\IPRATROPIUM [Concomitant]
     Active Substance: FENOTEROL\IPRATROPIUM
     Dosage: 1 DOSAGE FORM, QD
     Route: 065
  90. FENOTEROL\IPRATROPIUM [Concomitant]
     Active Substance: FENOTEROL\IPRATROPIUM
     Dosage: 1 DOSAGE FORM, TID
     Route: 050
  91. FLUTICASONE [Concomitant]
     Active Substance: FLUTICASONE
     Indication: Product used for unknown indication
     Route: 065
  92. FLUTICASONE FUROATE [Concomitant]
     Active Substance: FLUTICASONE FUROATE
     Indication: Nutritional supplementation
     Route: 065
  93. FLUTICASONE FUROATE\VILANTEROL TRIFENATATE [Concomitant]
     Active Substance: FLUTICASONE FUROATE\VILANTEROL TRIFENATATE
     Indication: Product used for unknown indication
     Dosage: 1 INTERNATIONAL UNIT, QD
     Route: 048
  94. FLUTICASONE FUROATE\VILANTEROL TRIFENATATE [Concomitant]
     Active Substance: FLUTICASONE FUROATE\VILANTEROL TRIFENATATE
     Indication: Off label use
     Dosage: UNK UNK, QD
     Route: 065
  95. FLUTICASONE FUROATE\VILANTEROL TRIFENATATE [Concomitant]
     Active Substance: FLUTICASONE FUROATE\VILANTEROL TRIFENATATE
     Indication: Nutritional supplementation
     Dosage: 1 INTERNATIONAL UNIT
     Route: 048
  96. FLUTICASONE FUROATE\VILANTEROL TRIFENATATE [Concomitant]
     Active Substance: FLUTICASONE FUROATE\VILANTEROL TRIFENATATE
     Indication: Intentional product misuse
     Dosage: UNK INTERNATIONAL UNIT
     Route: 058
  97. FLUTICASONE FUROATE\VILANTEROL TRIFENATATE [Concomitant]
     Active Substance: FLUTICASONE FUROATE\VILANTEROL TRIFENATATE
     Indication: Dyspnoea
     Dosage: UNK
     Route: 065
  98. FRAGMIN [Concomitant]
     Active Substance: DALTEPARIN SODIUM
     Indication: Thrombosis
     Dosage: UNK
     Route: 065
  99. FRAGMIN [Concomitant]
     Active Substance: DALTEPARIN SODIUM
     Indication: Pulmonary embolism
     Dosage: 2.5 MILLILITER
     Route: 065
  100. FRAGMIN [Concomitant]
     Active Substance: DALTEPARIN SODIUM
     Indication: Product used for unknown indication
     Dosage: UNK MILLILITER
     Route: 048
  101. FRAGMIN [Concomitant]
     Active Substance: DALTEPARIN SODIUM
     Dosage: UNK MILLILITER
     Route: 042
  102. GABAPENTIN [Concomitant]
     Active Substance: GABAPENTIN
     Indication: Neuralgia
     Route: 065
  103. GABAPENTIN [Concomitant]
     Active Substance: GABAPENTIN
     Indication: Bacterial infection
     Dosage: 100 MILLIGRAM
     Route: 048
  104. GABAPENTIN [Concomitant]
     Active Substance: GABAPENTIN
     Indication: Off label use
     Dosage: 100 MILLIGRAM, QD
     Route: 048
  105. GABAPENTIN [Concomitant]
     Active Substance: GABAPENTIN
     Indication: Intentional product misuse
     Dosage: UNK UNK, QD
     Route: 048
  106. GABAPENTIN ENACARBIL [Concomitant]
     Active Substance: GABAPENTIN ENACARBIL
     Indication: Neuralgia
     Dosage: 100 MILLIGRAM, QD
     Route: 048
  107. DEXTROSE [Concomitant]
     Active Substance: DEXTROSE
     Indication: Product used for unknown indication
     Dosage: 12.5 GRAM
     Route: 065
  108. DEXTROSE [Concomitant]
     Active Substance: DEXTROSE
     Indication: Off label use
     Dosage: 12.0 GRAM, QD
     Route: 042
  109. DEXTROSE [Concomitant]
     Active Substance: DEXTROSE
     Indication: Nutritional supplementation
     Dosage: 12.5 MILLIGRAM
     Route: 042
  110. DEXTROSE [Concomitant]
     Active Substance: DEXTROSE
     Indication: Intentional product misuse
     Dosage: 12.5 MILLIGRAM
     Route: 065
  111. DEXTROSE [Concomitant]
     Active Substance: DEXTROSE
     Dosage: 12.5 MILLIGRAM, QD
     Route: 042
  112. DEXTROSE [Concomitant]
     Active Substance: DEXTROSE
     Dosage: 12.5 GRAM
     Route: 042
  113. DEXTROSE [Concomitant]
     Active Substance: DEXTROSE
     Dosage: 12.5 GRAM, QD
     Route: 065
  114. DEXTROSE [Concomitant]
     Active Substance: DEXTROSE
     Dosage: UNK UNK
     Route: 065
  115. DEXTROSE [Concomitant]
     Active Substance: DEXTROSE
     Indication: Product used for unknown indication
     Dosage: 12.5 GRAM, QD
     Route: 042
  116. DEXTROSE [Concomitant]
     Active Substance: DEXTROSE
     Indication: Off label use
  117. DEXTROSE [Concomitant]
     Active Substance: DEXTROSE
     Indication: Nutritional supplementation
  118. DEXTROSE [Concomitant]
     Active Substance: DEXTROSE
     Indication: Intentional product misuse
  119. DEXTROSE\HEPARIN SODIUM [Concomitant]
     Active Substance: DEXTROSE\HEPARIN SODIUM
     Indication: Product used for unknown indication
     Route: 065
  120. DEXTROSE\HEPARIN SODIUM [Concomitant]
     Active Substance: DEXTROSE\HEPARIN SODIUM
     Indication: Intentional product misuse
     Dosage: 250 MILLILITER
     Route: 042
  121. DEXTROSE\HEPARIN SODIUM [Concomitant]
     Active Substance: DEXTROSE\HEPARIN SODIUM
     Indication: Anticoagulant therapy
     Dosage: 250 MILLILITER, QD
     Route: 042
  122. DEXTROSE\HEPARIN SODIUM [Concomitant]
     Active Substance: DEXTROSE\HEPARIN SODIUM
     Indication: Off label use
     Dosage: 50 MILLILITER
     Route: 017
  123. DEXTROSE\HEPARIN SODIUM [Concomitant]
     Active Substance: DEXTROSE\HEPARIN SODIUM
     Dosage: 50 MILLILITER
     Route: 042
  124. DEXTROSE\HEPARIN SODIUM [Concomitant]
     Active Substance: DEXTROSE\HEPARIN SODIUM
     Dosage: 50 MILLILITER, QD
     Route: 065
  125. DEXTROSE\HEPARIN SODIUM [Concomitant]
     Active Substance: DEXTROSE\HEPARIN SODIUM
     Dosage: 12.5 GRAM, QD
     Route: 042
  126. DEXTROSE\HEPARIN SODIUM [Concomitant]
     Active Substance: DEXTROSE\HEPARIN SODIUM
     Dosage: 12.5 MILLIGRAM
     Route: 042
  127. DEXTROSE\HEPARIN SODIUM [Concomitant]
     Active Substance: DEXTROSE\HEPARIN SODIUM
     Dosage: 12.5 MILLIGRAM, QD
     Route: 042
  128. HEPARIN SODIUM [Concomitant]
     Active Substance: HEPARIN SODIUM
     Indication: Product used for unknown indication
     Dosage: 50 MILLILITER, QD
     Route: 065
  129. HEPARIN SODIUM [Concomitant]
     Active Substance: HEPARIN SODIUM
     Indication: Off label use
     Dosage: 250 MILLILITER
     Route: 042
  130. HEPARIN SODIUM [Concomitant]
     Active Substance: HEPARIN SODIUM
     Indication: Anticoagulant therapy
     Dosage: 50 MILLILITER
     Route: 017
  131. HEPARIN SODIUM [Concomitant]
     Active Substance: HEPARIN SODIUM
     Dosage: 50 MILLILITER
     Route: 042
  132. HEPARIN SODIUM [Concomitant]
     Active Substance: HEPARIN SODIUM
     Dosage: 50 MILLILITER, QD
     Route: 042
  133. HEPARIN SODIUM\SODIUM CHLORIDE [Concomitant]
     Active Substance: HEPARIN SODIUM\SODIUM CHLORIDE
     Indication: Anticoagulant therapy
     Dosage: 250 MILLILITER
     Route: 042
  134. HEPARIN SODIUM\SODIUM CHLORIDE [Concomitant]
     Active Substance: HEPARIN SODIUM\SODIUM CHLORIDE
     Indication: Product used for unknown indication
  135. HEPARIN SODIUM\SODIUM CHLORIDE [Concomitant]
     Active Substance: HEPARIN SODIUM\SODIUM CHLORIDE
     Indication: Anticoagulant therapy
     Dosage: 50 MILLILITER
     Route: 042
  136. HEPARIN SODIUM\SODIUM CHLORIDE [Concomitant]
     Active Substance: HEPARIN SODIUM\SODIUM CHLORIDE
     Indication: Product used for unknown indication
  137. HYDROMORPHONE [Concomitant]
     Active Substance: HYDROMORPHONE
     Indication: Product used for unknown indication
     Dosage: 17 MILLIGRAM
     Route: 065
  138. HYDROMORPHONE [Concomitant]
     Active Substance: HYDROMORPHONE
     Indication: Analgesic therapy
     Dosage: 6 MILLIGRAM
     Route: 058
  139. HYDROMORPHONE [Concomitant]
     Active Substance: HYDROMORPHONE
     Dosage: 1 MILLIGRAM, QD
     Route: 058
  140. HYDROMORPHONE [Concomitant]
     Active Substance: HYDROMORPHONE
     Dosage: 1 MILLIGRAM
     Route: 058
  141. HYDROMORPHONE [Concomitant]
     Active Substance: HYDROMORPHONE
     Dosage: 96 MILLIGRAM, QD
     Route: 058
  142. HYDROMORPHONE [Concomitant]
     Active Substance: HYDROMORPHONE
     Dosage: UNK UNK, TID
     Route: 058
  143. HYDROMORPHONE [Concomitant]
     Active Substance: HYDROMORPHONE
     Dosage: 4 MILLIGRAM
     Route: 058
  144. HYDROMORPHONE [Concomitant]
     Active Substance: HYDROMORPHONE
     Dosage: 24 MILLIGRAM
     Route: 058
  145. HYDROMORPHONE HYDROCHLORIDE [Concomitant]
     Active Substance: HYDROMORPHONE HYDROCHLORIDE
     Indication: Product used for unknown indication
     Dosage: 1 MILLIGRAM
     Route: 058
  146. HYDROMORPHONE HYDROCHLORIDE [Concomitant]
     Active Substance: HYDROMORPHONE HYDROCHLORIDE
     Indication: Off label use
     Dosage: 96 MILLIGRAM, QD
     Route: 058
  147. HYDROMORPHONE HYDROCHLORIDE [Concomitant]
     Active Substance: HYDROMORPHONE HYDROCHLORIDE
     Indication: Intentional product misuse
     Dosage: 17 MILLIGRAM, QD
     Route: 065
  148. HYDROMORPHONE HYDROCHLORIDE [Concomitant]
     Active Substance: HYDROMORPHONE HYDROCHLORIDE
     Indication: Analgesic therapy
     Dosage: 1 MILLIGRAM, QD
     Route: 058
  149. HYDROMORPHONE HYDROCHLORIDE [Concomitant]
     Active Substance: HYDROMORPHONE HYDROCHLORIDE
     Dosage: UNK UNK, QD
     Route: 065
  150. HYDROMORPHONE HYDROCHLORIDE [Concomitant]
     Active Substance: HYDROMORPHONE HYDROCHLORIDE
     Dosage: 4 MILLIGRAM
     Route: 058
  151. HYDROMORPHONE HYDROCHLORIDE [Concomitant]
     Active Substance: HYDROMORPHONE HYDROCHLORIDE
     Dosage: 6 MILLIGRAM, TID
     Route: 058
  152. HYDROMORPHONE HYDROCHLORIDE [Concomitant]
     Active Substance: HYDROMORPHONE HYDROCHLORIDE
     Dosage: 24 MILLIGRAM
     Route: 058
  153. HYDROMORPHONE HYDROCHLORIDE [Concomitant]
     Active Substance: HYDROMORPHONE HYDROCHLORIDE
     Dosage: 6 MILLIGRAM
     Route: 058
  154. HYDROMORPHONE HYDROCHLORIDE [Concomitant]
     Active Substance: HYDROMORPHONE HYDROCHLORIDE
     Dosage: 17 MILLIGRAM, QD
     Route: 065
  155. INSULIN ASPART [Concomitant]
     Active Substance: INSULIN ASPART
     Indication: Diabetes mellitus
     Route: 058
  156. INSULIN ASPART [Concomitant]
     Active Substance: INSULIN ASPART
     Indication: Product used for unknown indication
     Route: 065
  157. INSULIN DEGLUDEC [Concomitant]
     Active Substance: INSULIN DEGLUDEC
     Indication: Product used for unknown indication
     Route: 058
  158. INSULIN DEGLUDEC [Concomitant]
     Active Substance: INSULIN DEGLUDEC
     Indication: Diabetes mellitus
     Route: 058
  159. INSULIN DEGLUDEC [Concomitant]
     Active Substance: INSULIN DEGLUDEC
     Dosage: 1 DOSAGE FORM, QD
     Route: 058
  160. IPRATROPIUM BROMIDE [Concomitant]
     Active Substance: IPRATROPIUM BROMIDE
     Indication: Sleep disorder therapy
     Dosage: UNK, QD
  161. IPRATROPIUM BROMIDE [Concomitant]
     Active Substance: IPRATROPIUM BROMIDE
     Indication: Product used for unknown indication
     Dosage: 1 DOSAGE FORM
  162. IPRATROPIUM BROMIDE [Concomitant]
     Active Substance: IPRATROPIUM BROMIDE
     Indication: Intentional product misuse
     Dosage: UNK UNK, QD
     Route: 065
  163. IPRATROPIUM BROMIDE [Concomitant]
     Active Substance: IPRATROPIUM BROMIDE
     Indication: Off label use
     Dosage: 1 DOSAGE FORM, QD
     Route: 065
  164. IPRATROPIUM BROMIDE [Concomitant]
     Active Substance: IPRATROPIUM BROMIDE
     Indication: Dyspnoea
     Dosage: UNK, QD
  165. IPRATROPIUM BROMIDE [Concomitant]
     Active Substance: IPRATROPIUM BROMIDE
     Dosage: UNK, QD
  166. IPRATROPIUM BROMIDE [Concomitant]
     Active Substance: IPRATROPIUM BROMIDE
     Dosage: 1 DOSAGE FORM
     Route: 065
  167. IPRATROPIUM BROMIDE [Concomitant]
     Active Substance: IPRATROPIUM BROMIDE
     Dosage: 1 DOSAGE FORM
     Route: 050
  168. IPRATROPIUM BROMIDE [Concomitant]
     Active Substance: IPRATROPIUM BROMIDE
     Dosage: UNK UNK, QD
     Route: 050
  169. IPRATROPIUM BROMIDE [Concomitant]
     Active Substance: IPRATROPIUM BROMIDE
     Dosage: 1 DOSAGE FORM, QD
     Route: 050
  170. IPRATROPIUM BROMIDE [Concomitant]
     Active Substance: IPRATROPIUM BROMIDE
     Dosage: UNK UNK, TID
     Route: 065
  171. IPRATROPIUM BROMIDE [Concomitant]
     Active Substance: IPRATROPIUM BROMIDE
     Dosage: UNK UNK, TID
     Route: 050
  172. IPRATROPIUM BROMIDE [Concomitant]
     Active Substance: IPRATROPIUM BROMIDE
     Dosage: UNK UNK, TID
  173. IPRATROPIUM BROMIDE [Concomitant]
     Active Substance: IPRATROPIUM BROMIDE
     Dosage: 4 DOSAGE FORM, QD
  174. IPRATROPIUM BROMIDE [Concomitant]
     Active Substance: IPRATROPIUM BROMIDE
     Dosage: 1 DOSAGE FORM
  175. ALBUTEROL SULFATE\IPRATROPIUM BROMIDE [Concomitant]
     Active Substance: ALBUTEROL SULFATE\IPRATROPIUM BROMIDE
     Indication: Dyspnoea
     Dosage: 1 DOSAGE FORM
  176. ALBUTEROL SULFATE\IPRATROPIUM BROMIDE [Concomitant]
     Active Substance: ALBUTEROL SULFATE\IPRATROPIUM BROMIDE
     Dosage: UNK DOSAGE FORM
  177. LANSOPRAZOLE [Concomitant]
     Active Substance: LANSOPRAZOLE
     Indication: Off label use
     Dosage: UNK, QD
     Route: 048
  178. LANSOPRAZOLE [Concomitant]
     Active Substance: LANSOPRAZOLE
     Indication: Intentional product misuse
     Dosage: UNK, QD
     Route: 065
  179. LANSOPRAZOLE [Concomitant]
     Active Substance: LANSOPRAZOLE
     Indication: Antacid therapy
     Dosage: UNK, QD, DELAYED RELEASE
     Route: 065
  180. LANTHANUM CARBONATE [Concomitant]
     Active Substance: LANTHANUM CARBONATE
     Indication: Hyperphosphataemia
     Dosage: 500 MILLIGRAM, QD
     Route: 048
  181. LANTHANUM CARBONATE [Concomitant]
     Active Substance: LANTHANUM CARBONATE
     Indication: Blood phosphorus increased
     Dosage: 500 MILLIGRAM
     Route: 048
  182. LANTHANUM CARBONATE [Concomitant]
     Active Substance: LANTHANUM CARBONATE
     Indication: Off label use
     Dosage: UNK MILLIGRAM
     Route: 048
  183. LANTHANUM CARBONATE [Concomitant]
     Active Substance: LANTHANUM CARBONATE
     Dosage: UNK MILLIGRAM
     Route: 065
  184. LANTHANUM CARBONATE [Concomitant]
     Active Substance: LANTHANUM CARBONATE
     Dosage: 550 MILLIGRAM
     Route: 048
  185. LANTHANUM CARBONATE [Concomitant]
     Active Substance: LANTHANUM CARBONATE
     Dosage: 550 MILLIGRAM, QD
     Route: 048
  186. POLYETHYLENE GLYCOL 3350\POTASSIUM CHLORIDE\SODIUM BICARBONATE\SODIUM [Concomitant]
     Active Substance: POLYETHYLENE GLYCOL 3350\POTASSIUM CHLORIDE\SODIUM BICARBONATE\SODIUM CHLORIDE
     Indication: Constipation
     Dosage: 17 GRAM, QD
     Route: 048
  187. POLYETHYLENE GLYCOL 3350 [Concomitant]
     Active Substance: POLYETHYLENE GLYCOL 3350
     Indication: Product used for unknown indication
     Dosage: UNK, QD
     Route: 048
  188. POLYETHYLENE GLYCOL 3350 [Concomitant]
     Active Substance: POLYETHYLENE GLYCOL 3350
     Indication: Constipation
     Dosage: 3 MILLIGRAM
     Route: 048
  189. POLYETHYLENE GLYCOL 3350 [Concomitant]
     Active Substance: POLYETHYLENE GLYCOL 3350
     Dosage: 17 MILLIGRAM, QD
     Route: 048
  190. POLYETHYLENE GLYCOL 3350 [Concomitant]
     Active Substance: POLYETHYLENE GLYCOL 3350
     Dosage: 17 GRAM, QD
     Route: 048
  191. POLYETHYLENE GLYCOL 3350 [Concomitant]
     Active Substance: POLYETHYLENE GLYCOL 3350
     Dosage: UNK UNK
     Route: 048
  192. POLYETHYLENE GLYCOL 400 [Concomitant]
     Active Substance: POLYETHYLENE GLYCOL 400
     Indication: Product used for unknown indication
     Dosage: 3 MILLIGRAM
     Route: 048
  193. POLYETHYLENE GLYCOL 400 [Concomitant]
     Active Substance: POLYETHYLENE GLYCOL 400
     Indication: Constipation
     Dosage: 17 MILLIGRAM, QD
     Route: 048
  194. POLYETHYLENE GLYCOL 400 [Concomitant]
     Active Substance: POLYETHYLENE GLYCOL 400
     Dosage: 2.5 MILLILITER, QD
     Route: 065
  195. POLYETHYLENE GLYCOL 400 [Concomitant]
     Active Substance: POLYETHYLENE GLYCOL 400
     Dosage: 3 GRAM
     Route: 065
  196. POLYETHYLENE GLYCOL 400 [Concomitant]
     Active Substance: POLYETHYLENE GLYCOL 400
     Dosage: 17 GRAM, QD
     Route: 048
  197. POLYETHYLENE GLYCOL 400 [Concomitant]
     Active Substance: POLYETHYLENE GLYCOL 400
     Dosage: UNK UNK, QD
     Route: 065
  198. MAGNESIUM HYDROXIDE [Concomitant]
     Active Substance: MAGNESIUM HYDROXIDE
     Indication: Product used for unknown indication
     Route: 065
  199. MELATONIN [Concomitant]
     Active Substance: MELATONIN
     Indication: Sleep disorder therapy
     Dosage: 3 MILLIGRAM
     Route: 048
  200. MELATONIN [Concomitant]
     Active Substance: MELATONIN
     Indication: Product used for unknown indication
     Dosage: UNK MILLIGRAM
     Route: 048
  201. MELATONIN [Concomitant]
     Active Substance: MELATONIN
     Indication: Intentional product misuse
     Dosage: 3 MILLIGRAM, QD
     Route: 048
  202. METRONIDAZOLE [Concomitant]
     Active Substance: METRONIDAZOLE
     Indication: Product used for unknown indication
     Dosage: 1500 MILLIGRAM, QD
     Route: 048
  203. METRONIDAZOLE [Concomitant]
     Active Substance: METRONIDAZOLE
     Indication: Bacterial infection
     Dosage: 500 MILLIGRAM, QD
     Route: 048
  204. METRONIDAZOLE [Concomitant]
     Active Substance: METRONIDAZOLE
     Dosage: 500 MILLIGRAM
     Route: 048
  205. METRONIDAZOLE [Concomitant]
     Active Substance: METRONIDAZOLE
     Dosage: 500 MILLIGRAM, QD
     Route: 048
  206. METRONIDAZOLE [Concomitant]
     Active Substance: METRONIDAZOLE
     Dosage: UNK UNK, TID
     Route: 065
  207. NOREPINEPHRINE [Concomitant]
     Active Substance: NOREPINEPHRINE
     Indication: Stress
     Route: 042
  208. NOREPINEPHRINE [Concomitant]
     Active Substance: NOREPINEPHRINE
     Indication: Product used for unknown indication
     Dosage: 3 MILLIGRAM, QD
     Route: 042
  209. NOREPINEPHRINE [Concomitant]
     Active Substance: NOREPINEPHRINE
     Indication: Off label use
     Dosage: 3 MILLIGRAM, QD
     Route: 048
  210. NOREPINEPHRINE [Concomitant]
     Active Substance: NOREPINEPHRINE
     Indication: Intentional product misuse
     Dosage: 1 DOSAGE FORM, QD
     Route: 048
  211. NOREPINEPHRINE [Concomitant]
     Active Substance: NOREPINEPHRINE
     Dosage: UNK UNK, QD
     Route: 065
  212. NOREPINEPHRINE [Concomitant]
     Active Substance: NOREPINEPHRINE
     Dosage: 1 UNK, QD
     Route: 042
  213. ONDANSETRON [Concomitant]
     Active Substance: ONDANSETRON
     Indication: Vomiting
     Dosage: 36 MILLIGRAM, TID
     Route: 042
  214. ONDANSETRON [Concomitant]
     Active Substance: ONDANSETRON
     Indication: Nausea
     Dosage: 4 MILLIGRAM, QD
     Route: 042
  215. ONDANSETRON [Concomitant]
     Active Substance: ONDANSETRON
     Indication: Product used for unknown indication
     Dosage: 1 DOSAGE FORM
     Route: 042
  216. ONDANSETRON [Concomitant]
     Active Substance: ONDANSETRON
     Dosage: 41.4 MILLIGRAM
     Route: 042
  217. ONDANSETRON [Concomitant]
     Active Substance: ONDANSETRON
     Dosage: 4 MILLIGRAM
     Route: 042
  218. ONDANSETRON [Concomitant]
     Active Substance: ONDANSETRON
     Dosage: 41.14 MILLIGRAM
     Route: 042
  219. ONDANSETRON [Concomitant]
     Active Substance: ONDANSETRON
     Dosage: 12 MILLIGRAM
     Route: 042
  220. ONDANSETRON [Concomitant]
     Active Substance: ONDANSETRON
     Dosage: UNK UNK, TID
     Route: 042
  221. ONDANSETRON [Concomitant]
     Active Substance: ONDANSETRON
     Dosage: 24 MILLIGRAM
     Route: 042
  222. ONDANSETRON [Concomitant]
     Active Substance: ONDANSETRON
     Dosage: 40 MILLIGRAM
     Route: 042
  223. ONDANSETRON [Concomitant]
     Active Substance: ONDANSETRON
     Dosage: 8 MILLIGRAM
     Route: 042
  224. ONDANSETRON [Concomitant]
     Active Substance: ONDANSETRON
     Dosage: 1 DOSAGE FORM
     Route: 065
  225. OSELTAMIVIR PHOSPHATE [Concomitant]
     Active Substance: OSELTAMIVIR PHOSPHATE
     Indication: Product used for unknown indication
     Dosage: 133 MILLILITER
     Route: 054
  226. OSELTAMIVIR PHOSPHATE [Concomitant]
     Active Substance: OSELTAMIVIR PHOSPHATE
     Dosage: UNK
     Route: 065
  227. OSELTAMIVIR PHOSPHATE [Concomitant]
     Active Substance: OSELTAMIVIR PHOSPHATE
     Dosage: 12.5 MILLIGRAM
     Route: 042
  228. OTRIVIN [Concomitant]
     Active Substance: XYLOMETAZOLINE
     Indication: Dyspnoea
  229. HERBALS\PAULLINIA CUPANA SEED [Concomitant]
     Active Substance: HERBALS\PAULLINIA CUPANA SEED
     Indication: Nutritional supplementation
     Dosage: 12.5 MILLIGRAM
     Route: 042
  230. HERBALS\PAULLINIA CUPANA SEED [Concomitant]
     Active Substance: HERBALS\PAULLINIA CUPANA SEED
     Indication: Product used for unknown indication
     Dosage: UNK MILLIGRAM
     Route: 065
  231. HERBALS\PAULLINIA CUPANA SEED [Concomitant]
     Active Substance: HERBALS\PAULLINIA CUPANA SEED
     Dosage: 17 MILLIGRAM
     Route: 048
  232. PHYTONADIONE [Concomitant]
     Active Substance: PHYTONADIONE
     Indication: Vitamin supplementation
     Dosage: 5 MILLIGRAM
     Route: 042
  233. PHYTONADIONE [Concomitant]
     Active Substance: PHYTONADIONE
     Indication: Product used for unknown indication
     Dosage: 5 MILLIGRAM
     Route: 017
  234. PHYTONADIONE [Concomitant]
     Active Substance: PHYTONADIONE
     Indication: Off label use
     Dosage: UNK MILLIGRAM
     Route: 042
  235. PHYTONADIONE [Concomitant]
     Active Substance: PHYTONADIONE
     Dosage: 5 MILLIGRAM, QD
     Route: 042
  236. PHYTONADIONE [Concomitant]
     Active Substance: PHYTONADIONE
     Dosage: 5 MILLIGRAM, QD
     Route: 017
  237. ANHYDROUS CITRIC ACID\MAGNESIUM OXIDE\SODIUM PICOSULFATE [Concomitant]
     Active Substance: ANHYDROUS CITRIC ACID\MAGNESIUM OXIDE\SODIUM PICOSULFATE
     Indication: Constipation
     Dosage: 10 MILLIGRAM
     Route: 054
  238. POTASSIUM CHLORATE [Concomitant]
     Active Substance: POTASSIUM CHLORATE
     Indication: Product used for unknown indication
     Route: 065
  239. POTASSIUM CHLORATE [Concomitant]
     Active Substance: POTASSIUM CHLORATE
     Dosage: 17 MILLIGRAM, QD
     Route: 048
  240. POTASSIUM CHLORIDE [Concomitant]
     Active Substance: POTASSIUM CHLORIDE
     Indication: Constipation
     Dosage: 17 GRAM, QD
     Route: 048
  241. POTASSIUM CHLORIDE [Concomitant]
     Active Substance: POTASSIUM CHLORIDE
     Indication: Product used for unknown indication
     Dosage: 17 MILLIGRAM, QD
     Route: 048
  242. POTASSIUM CHLORIDE [Concomitant]
     Active Substance: POTASSIUM CHLORIDE
     Dosage: UNK UNK, QD
     Route: 065
  243. PYRIDOXINE HYDROCHLORIDE [Concomitant]
     Active Substance: PYRIDOXINE HYDROCHLORIDE
     Indication: Vitamin supplementation
     Dosage: UNK, QD
     Route: 048
  244. PYRIDOXINE HYDROCHLORIDE [Concomitant]
     Active Substance: PYRIDOXINE HYDROCHLORIDE
     Indication: Product used for unknown indication
     Dosage: UNK, QD
     Route: 048
  245. PYRIDOXINE HYDROCHLORIDE [Concomitant]
     Active Substance: PYRIDOXINE HYDROCHLORIDE
     Indication: Vitamin supplementation
     Route: 048
  246. PYRIDOXINE HYDROCHLORIDE [Concomitant]
     Active Substance: PYRIDOXINE HYDROCHLORIDE
     Indication: Product used for unknown indication
  247. PYRIDOXINE HYDROCHLORIDE [Concomitant]
     Active Substance: PYRIDOXINE HYDROCHLORIDE
     Indication: Vitamin supplementation
     Dosage: UNK
     Route: 048
  248. PYRIDOXINE HYDROCHLORIDE [Concomitant]
     Active Substance: PYRIDOXINE HYDROCHLORIDE
     Indication: Product used for unknown indication
     Dosage: UNK
     Route: 065
  249. PYRIDOXINE HYDROCHLORIDE [Concomitant]
     Active Substance: PYRIDOXINE HYDROCHLORIDE
     Dosage: UNK, QD
     Route: 048
  250. PYRIDOXINE HYDROCHLORIDE [Concomitant]
     Active Substance: PYRIDOXINE HYDROCHLORIDE
     Dosage: UNK, QID
     Route: 048
  251. RIBOFLAVIN [Concomitant]
     Active Substance: RIBOFLAVIN
     Indication: Product used for unknown indication
     Dosage: 17 GRAM, QD
     Route: 065
  252. RIBOFLAVIN [Concomitant]
     Active Substance: RIBOFLAVIN
     Dosage: UNK UNK, QD
     Route: 048
  253. ALBUTEROL [Concomitant]
     Active Substance: ALBUTEROL
     Indication: Product used for unknown indication
     Dosage: 1 DOSAGE FORM
  254. ALBUTEROL [Concomitant]
     Active Substance: ALBUTEROL
     Indication: Off label use
     Dosage: 4 DOSAGE FORM, QD
  255. ALBUTEROL [Concomitant]
     Active Substance: ALBUTEROL
     Indication: Intentional product misuse
     Dosage: UNK UNK, QID
  256. ALBUTEROL [Concomitant]
     Active Substance: ALBUTEROL
     Indication: Chronic obstructive pulmonary disease
     Dosage: UNK UNK, QID
     Route: 050
  257. ALBUTEROL [Concomitant]
     Active Substance: ALBUTEROL
     Dosage: 1 DOSAGE FORM, QID
     Route: 050
  258. ALBUTEROL [Concomitant]
     Active Substance: ALBUTEROL
     Dosage: UNK UNK
     Route: 065
  259. ALBUTEROL [Concomitant]
     Active Substance: ALBUTEROL
     Dosage: UNK UNK, QD
     Route: 050
  260. ALBUTEROL [Concomitant]
     Active Substance: ALBUTEROL
     Dosage: 1 DOSAGE FORM
     Route: 065
  261. ALBUTEROL [Concomitant]
     Active Substance: ALBUTEROL
     Dosage: 4 DOSAGE FORM
     Route: 065
  262. ALBUTEROL [Concomitant]
     Active Substance: ALBUTEROL
     Dosage: 1 DOSAGE FORM, QID
  263. ALBUTEROL [Concomitant]
     Active Substance: ALBUTEROL
     Dosage: UNK
  264. ALBUTEROL [Concomitant]
     Active Substance: ALBUTEROL
     Dosage: 1 DOSAGE FORM, QID
     Route: 065
  265. ALBUTEROL [Concomitant]
     Active Substance: ALBUTEROL
     Dosage: UNK UNK, QD
  266. ALBUTEROL [Concomitant]
     Active Substance: ALBUTEROL
     Dosage: 4 DOSAGE FORM, QD
     Route: 065
  267. ALBUTEROL [Concomitant]
     Active Substance: ALBUTEROL
     Dosage: 1 DOSAGE FORM
     Route: 050
  268. ALBUTEROL [Concomitant]
     Active Substance: ALBUTEROL
     Dosage: UNK
  269. ALBUTEROL [Concomitant]
     Active Substance: ALBUTEROL
     Dosage: UNK DOSAGE FORM
     Route: 065
  270. ALBUTEROL [Concomitant]
     Active Substance: ALBUTEROL
     Dosage: 4 DOSAGE FORM
  271. ALBUTEROL [Concomitant]
     Active Substance: ALBUTEROL
     Dosage: UNK UNK, QID
     Route: 065
  272. SALMETEROL XINAFOATE [Concomitant]
     Active Substance: SALMETEROL XINAFOATE
     Indication: Product used for unknown indication
     Route: 065
  273. CALCITRIOL [Concomitant]
     Active Substance: CALCITRIOL
     Indication: Vitamin supplementation
     Dosage: 0.25 MILLIGRAM, QD
     Route: 048
  274. CALCITRIOL [Concomitant]
     Active Substance: CALCITRIOL
     Dosage: 500 MILLIGRAM
     Route: 048
  275. SIMVASTATIN [Concomitant]
     Active Substance: SIMVASTATIN
     Indication: Blood cholesterol increased
     Route: 065
  276. SIMVASTATIN [Concomitant]
     Active Substance: SIMVASTATIN
     Indication: Vitamin supplementation
     Dosage: UNK, QD
     Route: 048
  277. SIMVASTATIN [Concomitant]
     Active Substance: SIMVASTATIN
     Indication: Off label use
     Dosage: 40 MILLIGRAM, QD
     Route: 048
  278. SIMVASTATIN [Concomitant]
     Active Substance: SIMVASTATIN
     Indication: Intentional product misuse
  279. SODIUM CITRATE [Concomitant]
     Active Substance: SODIUM CITRATE
     Indication: Thrombosis
     Dosage: 2 GRAM
     Route: 065
  280. SODIUM CITRATE [Concomitant]
     Active Substance: SODIUM CITRATE
     Indication: Product used for unknown indication
     Dosage: 2.5 MILLILITER
     Route: 065
  281. SODIUM CITRATE [Concomitant]
     Active Substance: SODIUM CITRATE
     Dosage: 2.5 MILLILITER, QD
     Route: 065
  282. SODIUM CITRATE [Concomitant]
     Active Substance: SODIUM CITRATE
     Dosage: UNK UNK, QD
     Route: 065
  283. SODIUM CITRATE [Concomitant]
     Active Substance: SODIUM CITRATE
     Dosage: 2.5 MILLIGRAM, QD
     Route: 065
  284. SODIUM CITRATE [Concomitant]
     Active Substance: SODIUM CITRATE
     Dosage: 25 MILLILITER
     Route: 065
  285. SODIUM FERRIC GLUCONATE COMPLEX [Concomitant]
     Active Substance: SODIUM FERRIC GLUCONATE COMPLEX
     Indication: Product used for unknown indication
     Route: 065
  286. SODIUM FERRIC GLUCONATE COMPLEX [Concomitant]
     Active Substance: SODIUM FERRIC GLUCONATE COMPLEX
     Indication: Iron deficiency
     Dosage: 125 MILLIGRAM, QD
     Route: 042
  287. SODIUM FERRIC GLUCONATE COMPLEX [Concomitant]
     Active Substance: SODIUM FERRIC GLUCONATE COMPLEX
     Dosage: 4.64 MILLIGRAM
     Route: 065
  288. SODIUM FERRIC GLUCONATE COMPLEX [Concomitant]
     Active Substance: SODIUM FERRIC GLUCONATE COMPLEX
     Dosage: 133 MILLILITER
     Route: 054
  289. SODIUM FERRIC GLUCONATE COMPLEX [Concomitant]
     Active Substance: SODIUM FERRIC GLUCONATE COMPLEX
     Dosage: 17.85 MILLIGRAM
     Route: 042
  290. SODIUM FERRIC GLUCONATE COMPLEX [Concomitant]
     Active Substance: SODIUM FERRIC GLUCONATE COMPLEX
     Dosage: 4.64 MILLIGRAM
     Route: 042
  291. SODIUM FERRIC GLUCONATE COMPLEX [Concomitant]
     Active Substance: SODIUM FERRIC GLUCONATE COMPLEX
     Dosage: 1.25 MILLIGRAM
     Route: 042
  292. SODIUM FERRIC GLUCONATE COMPLEX [Concomitant]
     Active Substance: SODIUM FERRIC GLUCONATE COMPLEX
     Dosage: 125 MILLIGRAM, QD
     Route: 065
  293. SODIUM PHOSPHATE, MONOBASIC [Concomitant]
     Active Substance: SODIUM PHOSPHATE, MONOBASIC
     Indication: Product used for unknown indication
     Route: 054
  294. SODIUM PHOSPHATE, MONOBASIC [Concomitant]
     Active Substance: SODIUM PHOSPHATE, MONOBASIC
     Indication: Constipation
     Dosage: 133 MILLILITER
     Route: 054
  295. SODIUM PHOSPHATE, MONOBASIC [Concomitant]
     Active Substance: SODIUM PHOSPHATE, MONOBASIC
     Indication: Analgesic therapy
     Dosage: 133 MILLIGRAM
     Route: 054
  296. SODIUM PHOSPHATE, MONOBASIC [Concomitant]
     Active Substance: SODIUM PHOSPHATE, MONOBASIC
     Dosage: 10 MILLIGRAM
     Route: 054
  297. SODIUM PHOSPHATE, MONOBASIC [Concomitant]
     Active Substance: SODIUM PHOSPHATE, MONOBASIC
     Dosage: 133 MILLILITER
     Route: 065
  298. SODIUM PICOSULFATE [Concomitant]
     Active Substance: SODIUM PICOSULFATE
     Indication: Product used for unknown indication
     Dosage: 12.5 MILLIGRAM
     Route: 065
  299. SODIUM PICOSULFATE [Concomitant]
     Active Substance: SODIUM PICOSULFATE
     Indication: Constipation
     Dosage: 10 MILLIGRAM
     Route: 065
  300. SODIUM PICOSULFATE [Concomitant]
     Active Substance: SODIUM PICOSULFATE
     Indication: Analgesic therapy
     Dosage: UNK MILLIGRAM
     Route: 054
  301. SODIUM PICOSULFATE [Concomitant]
     Active Substance: SODIUM PICOSULFATE
     Dosage: 10 MILLIGRAM
     Route: 054
  302. SODIUM PICOSULFATE [Concomitant]
     Active Substance: SODIUM PICOSULFATE
     Dosage: UNK MILLIGRAM
     Route: 065
  303. SUCROSE [Concomitant]
     Active Substance: SUCROSE
     Indication: Product used for unknown indication
     Dosage: 125 MILLIGRAM
     Route: 065
  304. TRELEGY ELLIPTA [Concomitant]
     Active Substance: FLUTICASONE FUROATE\UMECLIDINIUM BROMIDE\VILANTEROL TRIFENATATE
     Indication: Product used for unknown indication
  305. TRELEGY ELLIPTA [Concomitant]
     Active Substance: FLUTICASONE FUROATE\UMECLIDINIUM BROMIDE\VILANTEROL TRIFENATATE
     Indication: Off label use
     Route: 065
  306. TRELEGY ELLIPTA [Concomitant]
     Active Substance: FLUTICASONE FUROATE\UMECLIDINIUM BROMIDE\VILANTEROL TRIFENATATE
     Indication: Intentional product misuse
  307. TRELEGY ELLIPTA [Concomitant]
     Active Substance: FLUTICASONE FUROATE\UMECLIDINIUM BROMIDE\VILANTEROL TRIFENATATE
     Indication: Product used for unknown indication
  308. TRELEGY ELLIPTA [Concomitant]
     Active Substance: FLUTICASONE FUROATE\UMECLIDINIUM BROMIDE\VILANTEROL TRIFENATATE
     Indication: Off label use
     Route: 065
  309. TRELEGY ELLIPTA [Concomitant]
     Active Substance: FLUTICASONE FUROATE\UMECLIDINIUM BROMIDE\VILANTEROL TRIFENATATE
     Indication: Intentional product misuse
  310. UMECLIDINIUM BROMIDE [Concomitant]
     Active Substance: UMECLIDINIUM BROMIDE
     Indication: Dyspnoea
     Dosage: 1 INTERNATIONAL UNIT, QD
     Route: 048
  311. UMECLIDINIUM BROMIDE [Concomitant]
     Active Substance: UMECLIDINIUM BROMIDE
     Indication: Product used for unknown indication
     Dosage: 1 DOSAGE FORM
     Route: 048
  312. UMECLIDINIUM BROMIDE [Concomitant]
     Active Substance: UMECLIDINIUM BROMIDE
     Dosage: UNK UNK, QD
     Route: 048
  313. UMECLIDINIUM BROMIDE [Concomitant]
     Active Substance: UMECLIDINIUM BROMIDE
     Dosage: 1 INTERNATIONAL UNIT
     Route: 048
  314. UMECLIDINIUM BROMIDE [Concomitant]
     Active Substance: UMECLIDINIUM BROMIDE
     Dosage: UNK UNK, QD
     Route: 065
  315. VASOPRESSIN [Concomitant]
     Active Substance: VASOPRESSIN
     Indication: Product used for unknown indication
     Route: 042
  316. VASOPRESSIN [Concomitant]
     Active Substance: VASOPRESSIN
     Indication: Drug therapy
     Dosage: 50 MILLILITER, QD
     Route: 042
  317. VASOPRESSIN [Concomitant]
     Active Substance: VASOPRESSIN
     Dosage: 1 INTERNATIONAL UNIT, QD
     Route: 065
  318. VASOPRESSIN [Concomitant]
     Active Substance: VASOPRESSIN
     Dosage: 250 MILLILITER, QD
     Route: 042
  319. VASOPRESSIN [Concomitant]
     Active Substance: VASOPRESSIN
     Dosage: UNK UNK, QD
     Route: 017
  320. VASOPRESSIN [Concomitant]
     Active Substance: VASOPRESSIN
     Dosage: UNK UNK, QD
     Route: 065
  321. VILANTEROL TRIFENATATE [Concomitant]
     Active Substance: VILANTEROL TRIFENATATE
     Indication: Dyspnoea
     Route: 065
  322. VILANTEROL TRIFENATATE [Concomitant]
     Active Substance: VILANTEROL TRIFENATATE
     Indication: Product used for unknown indication
     Dosage: 1 INTERNATIONAL UNIT
     Route: 048
  323. VILANTEROL TRIFENATATE [Concomitant]
     Active Substance: VILANTEROL TRIFENATATE
     Dosage: 1 INTERNATIONAL UNIT, QD
     Route: 048
  324. VITAMIN C [Concomitant]
     Active Substance: ASCORBIC ACID
     Indication: Product used for unknown indication
     Route: 065
  325. VITAMIN C [Concomitant]
     Active Substance: ASCORBIC ACID
     Indication: Constipation
     Dosage: 17 GRAM, QD
     Route: 048
  326. VITAMIN E [Concomitant]
     Active Substance: .ALPHA.-TOCOPHEROL
     Indication: Nutritional supplementation
     Dosage: 12.5 GRAM
     Route: 042
  327. VITAMIN K1 [Concomitant]
     Active Substance: PHYTONADIONE
     Indication: Vitamin supplementation
     Dosage: 5 MILLIGRAM, QD
     Route: 017
  328. VITAMIN K1 [Concomitant]
     Active Substance: PHYTONADIONE
     Indication: Product used for unknown indication
     Dosage: 5 MILLIGRAM
     Route: 042
  329. VITAMIN K1 [Concomitant]
     Active Substance: PHYTONADIONE
     Dosage: UNK MILLIGRAM
     Route: 065
  330. WARFARIN SODIUM [Concomitant]
     Active Substance: WARFARIN SODIUM
     Indication: Thrombosis
     Dosage: 2 MILLIGRAM, QD
     Route: 048
  331. WARFARIN SODIUM [Concomitant]
     Active Substance: WARFARIN SODIUM
     Indication: Product used for unknown indication
     Dosage: 2 MILLILITER, QD
     Route: 048
  332. WARFARIN SODIUM [Concomitant]
     Active Substance: WARFARIN SODIUM
     Indication: Off label use
     Dosage: UNK UNK, QD
     Route: 048
  333. WARFARIN SODIUM [Concomitant]
     Active Substance: WARFARIN SODIUM
     Dosage: UNK UNK, QD
     Route: 048
  334. WARFARIN SODIUM [Concomitant]
     Active Substance: WARFARIN SODIUM
     Dosage: 2 GRAM, QD
     Route: 048
  335. WARFARIN SODIUM [Concomitant]
     Active Substance: WARFARIN SODIUM
     Dosage: 2 MILLILITER
     Route: 048
  336. XANTOFYL PALMITATE [Concomitant]
     Active Substance: XANTOFYL PALMITATE
     Indication: Product used for unknown indication
     Dosage: 5 MILLIGRAM, QD
     Route: 042
  337. XANTOFYL PALMITATE [Concomitant]
     Active Substance: XANTOFYL PALMITATE
     Indication: Nutritional supplementation
     Dosage: 12.5 GRAM
     Route: 042
  338. XANTOFYL PALMITATE [Concomitant]
     Active Substance: XANTOFYL PALMITATE
     Dosage: UNK GRAM
     Route: 065

REACTIONS (33)
  - Abdominal distension [Fatal]
  - Abdominal pain [Fatal]
  - Anaemia [Fatal]
  - Analgesic therapy [Fatal]
  - Appendicitis [Fatal]
  - Appendicolith [Fatal]
  - Ascites [Fatal]
  - Bacterial infection [Fatal]
  - Blood cholesterol increased [Fatal]
  - Blood phosphorus increased [Fatal]
  - Blood uric acid increased [Fatal]
  - Cardiogenic shock [Fatal]
  - Condition aggravated [Fatal]
  - Constipation [Fatal]
  - Diabetes mellitus [Fatal]
  - Drug therapy [Fatal]
  - Dry mouth [Fatal]
  - Dyspnoea [Fatal]
  - General physical health deterioration [Fatal]
  - Hyponatraemia [Fatal]
  - Multiple organ dysfunction syndrome [Fatal]
  - Nausea [Fatal]
  - Neuralgia [Fatal]
  - Sepsis [Fatal]
  - Sleep disorder therapy [Fatal]
  - Somnolence [Fatal]
  - Stress [Fatal]
  - Swelling [Fatal]
  - Thrombosis [Fatal]
  - Ventricular fibrillation [Fatal]
  - Vomiting [Fatal]
  - Off label use [Fatal]
  - Intentional product misuse [Fatal]
